FAERS Safety Report 23161296 (Version 1)
Quarter: 2023Q4

REPORT INFORMATION
  Report Type: Spontaneous
  Country: PT (occurrence: PT)
  Receive Date: 20231108
  Receipt Date: 20231108
  Transmission Date: 20240110
  Serious: Yes (Other)
  Sender: FDA-Public Use
  Company Number: None

PATIENT
  Age: 79 Year
  Sex: Female

DRUGS (2)
  1. RUXIENCE [Suspect]
     Active Substance: RITUXIMAB-PVVR
     Dosage: 2 DIFFERENT AMPOULES OF THE SAME MEDICINE WERE USED TO ACHIEVE THE PRESCRIBED DOSE
     Route: 042
     Dates: start: 20231025, end: 20231025
  2. RUXIENCE [Suspect]
     Active Substance: RITUXIMAB-PVVR
     Dosage: 2 DIFFERENT AMPOULES OF THE SAME MEDICINE WERE USED TO ACHIEVE THE PRESCRIBED DOSE
     Route: 042
     Dates: start: 20231025, end: 20231025

REACTIONS (3)
  - Hyperhidrosis [Recovered/Resolved]
  - Tremor [Recovered/Resolved]
  - Dyspnoea [Recovered/Resolved]

NARRATIVE: CASE EVENT DATE: 20231025
